FAERS Safety Report 8789332 (Version 3)
Quarter: 2012Q4

REPORT INFORMATION
  Report Type: Spontaneous
  Country: US (occurrence: None)
  Receive Date: 20120905
  Receipt Date: 20121022
  Transmission Date: 20130627
  Serious: Yes (Other)
  Sender: FDA-Public Use
  Company Number: AUR-APL-2012-03633

PATIENT
  Age: 61 Year
  Sex: Female
  Weight: 78.46 kg

DRUGS (6)
  1. AMLODIPINE (AMLODIPINE) [Suspect]
  2. PERINDOPRIL [Suspect]
  3. ZOCOR [Suspect]
     Route: 048
     Dates: start: 20120310
  4. DIPYRIDAMOLE [Suspect]
     Route: 048
     Dates: start: 20120310
  5. ATORVASTATIN [Suspect]
     Route: 048
     Dates: start: 20120710, end: 20120731
  6. ASPIRIN [Suspect]

REACTIONS (6)
  - Abdominal pain [None]
  - Myalgia [None]
  - Renal disorder [None]
  - Muscle spasms [None]
  - Fear [None]
  - Quality of life decreased [None]
